FAERS Safety Report 4613742-X (Version None)
Quarter: 2005Q1

REPORT INFORMATION
  Report Type: 
  Country: None (occurrence: None)
  Receive Date: 20050321
  Receipt Date: 20050208
  Transmission Date: 20050727
  Serious: Yes (Hospitalization)
  Sender: FDA-Public Use
  Company Number: US-2005-BP-01903BP

PATIENT
  Age: 37 Year
  Sex: Female
  Weight: 61.7 kg

DRUGS (5)
  1. MOBIC [Suspect]
     Indication: RHEUMATOID ARTHRITIS
     Route: 048
     Dates: start: 20040927, end: 20041203
  2. MOBIC [Suspect]
     Indication: TENDONITIS
  3. DILANTIN [Concomitant]
     Indication: EPILEPSY
     Dosage: ALTERNATE 500-600 MG DAY TO DAY
  4. INSULIN [Concomitant]
     Indication: DIABETES MELLITUS
  5. VASOTEC [Concomitant]
     Indication: HYPERTENSION

REACTIONS (1)
  - CEREBROVASCULAR ACCIDENT [None]
